FAERS Safety Report 25567937 (Version 1)
Quarter: 2025Q3

REPORT INFORMATION
  Report Type: Spontaneous
  Country: US (occurrence: US)
  Receive Date: 20250716
  Receipt Date: 20250716
  Transmission Date: 20251020
  Serious: No
  Sender: NOVO NORDISK
  Company Number: US-NOVOPROD-1368190

PATIENT
  Weight: 115.65 kg

DRUGS (1)
  1. OZEMPIC [Suspect]
     Active Substance: SEMAGLUTIDE
     Indication: Product used for unknown indication
     Route: 058
     Dates: start: 202410

REACTIONS (5)
  - Gastrointestinal disorder [Unknown]
  - Irritable bowel syndrome [Unknown]
  - Flatulence [Unknown]
  - Weight decreased [Unknown]
  - Diarrhoea [Unknown]
